FAERS Safety Report 4960292-7 (Version None)
Quarter: 2006Q1

REPORT INFORMATION
  Report Type: 
  Country: None (occurrence: None)
  Receive Date: 20060328
  Receipt Date: 20060317
  Transmission Date: 20060701
  Serious: Yes (Hospitalization)
  Sender: FDA-Public Use
  Company Number: 2006039383

PATIENT
  Sex: Male

DRUGS (8)
  1. SOLU-MEDROL [Suspect]
     Indication: NEURALGIA
     Dosage: 500 MG INTRAVENOUS
     Route: 042
  2. NEURONTIN [Suspect]
     Indication: NEURALGIA
     Dosage: 300 MG
  3. PENMIX (INSULIN, HUMAN, INSULIN HUMAN INJECTION, ISOPHANE) [Concomitant]
  4. METFORMIN [Concomitant]
  5. TRAMADOL HCL [Concomitant]
  6. FLUOXETINE HCL [Concomitant]
  7. CORTICOSTEROID NOS [Concomitant]
  8. TEGRETOL [Concomitant]

REACTIONS (4)
  - BEDRIDDEN [None]
  - FALL [None]
  - INCORRECT DOSE ADMINISTERED [None]
  - INCORRECT DRUG ADMINISTRATION RATE [None]
